FAERS Safety Report 16691453 (Version 1)
Quarter: 2019Q3

REPORT INFORMATION
  Report Type: Spontaneous
  Country: US (occurrence: US)
  Receive Date: 20190624
  Receipt Date: 20190624
  Transmission Date: 20191004
  Serious: Yes (Hospitalization, Other)
  Sender: FDA-Public Use
  Company Number: None

PATIENT
  Age: 62 Year
  Sex: Female
  Weight: 108.86 kg

DRUGS (1)
  1. GADOTERATE MEGLUMINE [Suspect]
     Active Substance: GADOTERATE MEGLUMINE
     Indication: CONTRAST MEDIA DEPOSITION
     Dates: start: 20190201

REACTIONS (2)
  - Gait inability [None]
  - Condition aggravated [None]

NARRATIVE: CASE EVENT DATE: 20190201
